FAERS Safety Report 9516319 (Version 2)
Quarter: 2014Q1

REPORT INFORMATION
  Report Type: Spontaneous
  Country: US (occurrence: None)
  Receive Date: 20130305
  Receipt Date: 20140306
  Transmission Date: 20141002
  Serious: Yes (Other)
  Sender: FDA-Public Use
  Company Number: 163-21880-12113351

PATIENT
  Age: 65 Year
  Sex: Female

DRUGS (12)
  1. REVLIMID [Suspect]
     Indication: PLASMA CELL MYELOMA
     Dosage: 10 MG, 28 IN 28 D, PO
     Route: 048
     Dates: start: 20120202
  2. ACYCLOVIR (ACICLOVIR) (ACICLOVIR) [Concomitant]
  3. AMOXICILLIN [Concomitant]
  4. BISOPROLOL FUMARATE/HCTZ (BISELECT) [Concomitant]
  5. CITRACAL +D [Concomitant]
  6. CYCLOBENZAPRINE [Concomitant]
  7. LORAZEPAM [Concomitant]
  8. LUNESTA (ESZOPICLONE) [Concomitant]
  9. MULTIVITAMINS [Concomitant]
  10. POTASSIUM CHLORIDE [Concomitant]
  11. SULFAMETHOXAZOLE/TRIMETHOPRIM (BACTRIM) (SULFAMETHOXAZOLE, TRIMETHOPRIM) [Concomitant]
  12. SYNTHROID (LEVOTHYROXINE SODIUM) [Concomitant]

REACTIONS (4)
  - Diarrhoea [None]
  - Neuropathy peripheral [None]
  - Pain [None]
  - Drug dose omission [None]
